FAERS Safety Report 12931449 (Version 1)
Quarter: 2016Q4

REPORT INFORMATION
  Report Type: Spontaneous
  Country: US (occurrence: US)
  Receive Date: 20161111
  Receipt Date: 20161111
  Transmission Date: 20170207
  Serious: Yes (Life-Threatening)
  Sender: FDA-Public Use
  Company Number: None

PATIENT
  Age: 59 Year
  Sex: Male
  Weight: 74.1 kg

DRUGS (1)
  1. BENDAMUSTINE [Suspect]
     Active Substance: BENDAMUSTINE
     Indication: CHRONIC LYMPHOCYTIC LEUKAEMIA
     Dosage: ?          OTHER FREQUENCY:DAILY TIMES TWO;?
     Route: 042
     Dates: start: 20161012, end: 20161013

REACTIONS (4)
  - Oropharyngeal pain [None]
  - Gingival bleeding [None]
  - Febrile neutropenia [None]
  - Toxic epidermal necrolysis [None]

NARRATIVE: CASE EVENT DATE: 20161111
